FAERS Safety Report 19994812 (Version 1)
Quarter: 2021Q4

REPORT INFORMATION
  Report Type: Spontaneous
  Country: US (occurrence: US)
  Receive Date: 20211022
  Receipt Date: 20211022
  Transmission Date: 20220303
  Serious: Yes (Disabling)
  Sender: FDA-Public Use
  Company Number: None

PATIENT
  Age: 74 Year
  Sex: Female
  Weight: 58.97 kg

DRUGS (9)
  1. PROLIA [Suspect]
     Active Substance: DENOSUMAB
     Indication: Bone density decreased
     Dosage: ?          OTHER FREQUENCY:EVERY 6 MONTHS;
     Dates: start: 20140903, end: 20210520
  2. PREVACID [Concomitant]
     Active Substance: LANSOPRAZOLE
  3. LISINOPRIL [Concomitant]
     Active Substance: LISINOPRIL
  4. EPIPEN [Concomitant]
     Active Substance: EPINEPHRINE
  5. CALCIUM [Concomitant]
     Active Substance: CALCIUM
  6. LOW DOSE ASPIRIN [Concomitant]
     Active Substance: ASPIRIN
  7. FISH OIL [Concomitant]
     Active Substance: FISH OIL
  8. VITAMIN D NOS [Concomitant]
     Active Substance: VITAMIN D NOS
  9. TYLENOL [Concomitant]
     Active Substance: ACETAMINOPHEN

REACTIONS (4)
  - Pain in jaw [None]
  - Neck pain [None]
  - Headache [None]
  - Bone development abnormal [None]

NARRATIVE: CASE EVENT DATE: 20201101
